FAERS Safety Report 19460734 (Version 1)
Quarter: 2021Q2

REPORT INFORMATION
  Report Type: Spontaneous
  Country: US (occurrence: US)
  Receive Date: 20210625
  Receipt Date: 20210625
  Transmission Date: 20210717
  Serious: Yes (Other)
  Sender: FDA-Public Use
  Company Number: US-GLAXOSMITHKLINE-US2021GSK135313

PATIENT
  Sex: Male

DRUGS (6)
  1. ZANTAC [Suspect]
     Active Substance: RANITIDINE HYDROCHLORIDE
     Indication: POLYP
     Dosage: UNK UNK, QD
     Route: 065
     Dates: start: 201101, end: 201301
  2. RANITIDINE HYDROCHLORIDE. [Suspect]
     Active Substance: RANITIDINE HYDROCHLORIDE
     Indication: POLYP
     Dosage: UNK
     Route: 065
     Dates: start: 201101, end: 201412
  3. RANITIDINE HYDROCHLORIDE. [Suspect]
     Active Substance: RANITIDINE HYDROCHLORIDE
     Indication: HAEMATEMESIS
  4. ZANTAC [Suspect]
     Active Substance: RANITIDINE HYDROCHLORIDE
     Indication: HAEMATEMESIS
  5. RANITIDINE CAPSULE [Suspect]
     Active Substance: RANITIDINE
     Indication: POLYP
     Dosage: UNK, QD
     Route: 065
     Dates: start: 201101, end: 201301
  6. RANITIDINE CAPSULE [Suspect]
     Active Substance: RANITIDINE
     Indication: HAEMATEMESIS

REACTIONS (2)
  - Gastric cancer [Unknown]
  - Hepatic cancer [Unknown]
